FAERS Safety Report 9472484 (Version 1)
Quarter: 2013Q3

REPORT INFORMATION
  Report Type: Spontaneous
  Country: US (occurrence: None)
  Receive Date: 20130821
  Receipt Date: 20130821
  Transmission Date: 20140515
  Serious: No
  Sender: FDA-Public Use
  Company Number: None

PATIENT
  Age: 16 Year
  Sex: Female
  Weight: 52.4 kg

DRUGS (1)
  1. LEXAPRO [Suspect]
     Dosage: 1 TAB (10 MG) QHS/BEDTIME ORAL
     Route: 048
     Dates: start: 20130807, end: 20130808

REACTIONS (2)
  - Feeling abnormal [None]
  - Insomnia [None]
